FAERS Safety Report 5160106-9 (Version None)
Quarter: 2006Q4

REPORT INFORMATION
  Report Type: 
  Country: None (occurrence: None)
  Receive Date: 20061129
  Receipt Date: 20061123
  Transmission Date: 20070319
  Serious: Yes (Other)
  Sender: FDA-Public Use
  Company Number: DE-RB-004368-06

PATIENT
  Age: 49 Year
  Sex: Male

DRUGS (1)
  1. TEMGESIC [Suspect]
     Indication: PAIN
     Route: 048
     Dates: start: 20060731, end: 20060901

REACTIONS (2)
  - DIZZINESS [None]
  - VISUAL ACUITY REDUCED [None]
